FAERS Safety Report 9887891 (Version 2)
Quarter: 2014Q1

REPORT INFORMATION
  Report Type: Report from Study
  Country: PL (occurrence: PL)
  Receive Date: 20140211
  Receipt Date: 20140211
  Transmission Date: 20141002
  Serious: Yes (Hospitalization)
  Sender: FDA-Public Use
  Company Number: PL-SANOFI-AVENTIS-2012SA059862

PATIENT
  Age: 39 Year
  Sex: Female
  Weight: 95 kg

DRUGS (14)
  1. TERIFLUNOMIDE [Suspect]
     Indication: MULTIPLE SCLEROSIS RELAPSE
     Dosage: DOSE:1 UNIT(S)
     Route: 048
     Dates: start: 20080103
  2. CURATODERM [Concomitant]
     Indication: PSORIASIS
     Route: 061
     Dates: start: 20090714
  3. DAIVONEX [Concomitant]
     Indication: PSORIASIS
     Route: 061
     Dates: start: 20090714
  4. BETAMETHASONE/SALICYLIC ACID [Concomitant]
     Indication: PSORIASIS
     Route: 061
     Dates: start: 20090714
  5. ORGAMETRIL [Concomitant]
     Indication: CONTRACEPTION
     Route: 048
  6. PRESTARIUM [Concomitant]
     Indication: HYPERTENSION
     Route: 048
     Dates: start: 20090417
  7. ALL OTHER THERAPEUTIC PRODUCTS [Concomitant]
     Dosage: DOSE:2 UNIT(S)
     Route: 048
     Dates: start: 20110316
  8. ALL OTHER THERAPEUTIC PRODUCTS [Concomitant]
     Dates: start: 20110325
  9. ALL OTHER THERAPEUTIC PRODUCTS [Concomitant]
     Dates: start: 20090417
  10. MELOXICAM [Concomitant]
     Dates: start: 20090426
  11. ALL OTHER THERAPEUTIC PRODUCTS [Concomitant]
     Dosage: DOSE:1 UNIT(S)
     Route: 048
     Dates: start: 20090426
  12. COENZYME Q10 [Concomitant]
     Dates: start: 20090426
  13. METFORMAX [Concomitant]
     Dates: start: 20080411
  14. CILEST [Concomitant]
     Dosage: DOSE:1 UNIT(S)
     Route: 048
     Dates: start: 200511

REACTIONS (1)
  - Endometritis [Recovered/Resolved]
